FAERS Safety Report 4583931-1 (Version None)
Quarter: 2005Q1

REPORT INFORMATION
  Report Type: 
  Country: None (occurrence: None)
  Receive Date: 20050216
  Receipt Date: 20041227
  Transmission Date: 20050727
  Serious: No
  Sender: FDA-Public Use
  Company Number: US-GLAXOSMITHKLINE-A0538537A

PATIENT
  Age: 58 Year
  Sex: Male

DRUGS (3)
  1. AVODART [Suspect]
     Indication: ILL-DEFINED DISORDER
     Dosage: .5MG PER DAY
     Route: 048
     Dates: start: 20041129
  2. LUPRON [Concomitant]
  3. LISINOPRIL [Concomitant]

REACTIONS (4)
  - BURNING SENSATION [None]
  - MICTURITION URGENCY [None]
  - POLLAKIURIA [None]
  - PROSTATITIS [None]
